FAERS Safety Report 7572305-7 (Version None)
Quarter: 2011Q2

REPORT INFORMATION
  Report Type: 
  Country: None (occurrence: None)
  Receive Date: 20110624
  Receipt Date: 20110617
  Transmission Date: 20111010
  Serious: Yes (Other)
  Sender: FDA-Public Use
  Company Number: US-ABBOTT-11P-163-0734006-00

PATIENT
  Age: 42 Year
  Sex: Female

DRUGS (4)
  1. SULFASALAZINE [Concomitant]
     Indication: PRODUCT USED FOR UNKNOWN INDICATION
  2. HUMIRA [Suspect]
     Indication: MYOSITIS
     Dates: start: 20101122
  3. HUMIRA [Suspect]
     Indication: ARTHRITIS
  4. METHOTREXATE [Concomitant]
     Indication: PRODUCT USED FOR UNKNOWN INDICATION

REACTIONS (4)
  - BONE MARROW DISORDER [None]
  - LYMPHADENOPATHY [None]
  - WEIGHT DECREASED [None]
  - LYMPHOID TISSUE HYPERPLASIA [None]
